FAERS Safety Report 13344630 (Version 3)
Quarter: 2020Q2

REPORT INFORMATION
  Report Type: Report from Study
  Country: UG (occurrence: UG)
  Receive Date: 20170317
  Receipt Date: 20200523
  Transmission Date: 20200713
  Serious: Yes (Death, Other)
  Sender: FDA-Public Use
  Company Number: UG-CIPLA LTD.-2017UG04518

PATIENT

DRUGS (2)
  1. DAPSONE. [Concomitant]
     Active Substance: DAPSONE
     Indication: ANTIFUNGAL PROPHYLAXIS
     Dosage: UNK
     Route: 065
  2. AMPHOTERICIN B LIPOSOMAL [Suspect]
     Active Substance: AMPHOTERICIN B
     Indication: MENINGITIS CRYPTOCOCCAL
     Dosage: 6 MG/KG, QD, INFUSION
     Route: 042
     Dates: start: 20170307, end: 20170308

REACTIONS (7)
  - Acute kidney injury [Unknown]
  - Oedema peripheral [Unknown]
  - Urine output decreased [Recovering/Resolving]
  - Abdominal distension [Unknown]
  - Acute respiratory failure [None]
  - Anaemia [Unknown]
  - Hypocalcaemia [Unknown]
